FAERS Safety Report 18717007 (Version 1)
Quarter: 2021Q1

REPORT INFORMATION
  Report Type: Spontaneous
  Country: US (occurrence: US)
  Receive Date: 20210108
  Receipt Date: 20210108
  Transmission Date: 20210419
  Serious: No
  Sender: FDA-Public Use
  Company Number: US-PFIZER INC-2021003230

PATIENT
  Age: 62 Year
  Sex: Female
  Weight: 87.54 kg

DRUGS (3)
  1. ALPRAZOLAM. [Suspect]
     Active Substance: ALPRAZOLAM
     Indication: PANIC ATTACK
  2. ALPRAZOLAM. [Suspect]
     Active Substance: ALPRAZOLAM
     Indication: ANXIETY
     Dosage: 1 MG, FOUR TIMES A DAY
  3. TRIAMTERENE HCTZ [Suspect]
     Active Substance: HYDROCHLOROTHIAZIDE\TRIAMTERENE
     Indication: VERTIGO
     Dosage: UNK

REACTIONS (8)
  - Condition aggravated [Unknown]
  - Vertigo [Unknown]
  - Decreased appetite [Unknown]
  - Therapeutic product effect decreased [Unknown]
  - Astigmatism [Unknown]
  - Visual impairment [Not Recovered/Not Resolved]
  - Anxiety [Unknown]
  - Therapeutic response unexpected [Unknown]
